FAERS Safety Report 4763250-0 (Version None)
Quarter: 2005Q3

REPORT INFORMATION
  Report Type: 
  Country: None (occurrence: None)
  Receive Date: 20050902
  Receipt Date: 20050825
  Transmission Date: 20060218
  Serious: Yes (Hospitalization)
  Sender: FDA-Public Use
  Company Number: FRWYE923722AUG05

PATIENT
  Age: 38 Year
  Sex: Male

DRUGS (8)
  1. GEMTUZUMAB OZOGAMICIN (GEMTUZUMAB OZOGAMICIN, INJECTION, 0) [Suspect]
     Indication: MYELOID LEUKAEMIA
     Dosage: 5 MG 1X PER 1 DAY INTRAVENOUS
     Route: 042
     Dates: start: 20050819, end: 20050819
  2. GEMTUZUMAB OZOGAMICIN (GEMTUZUMAB OZOGAMICIN, INJECTION, 0) [Suspect]
     Indication: MYELOID LEUKAEMIA
     Dosage: 5 MG 1X PER 1 DAY INTRAVENOUS
     Route: 042
     Dates: start: 20050822, end: 20050822
  3. GEMTUZUMAB OZOGAMICIN (GEMTUZUMAB OZOGAMICIN, INJECTION, 0) [Suspect]
     Indication: MYELOID LEUKAEMIA
     Dosage: 5 MG 1X PER 1 DAY INTRAVENOUS
     Route: 042
     Dates: start: 20050825, end: 20050825
  4. HYDREA [Concomitant]
  5. BACTRIM [Concomitant]
  6. TRIFLUCAN (FLUCONAZOLE) [Concomitant]
  7. FANSIDAR [Concomitant]
  8. ZOVIRAX [Concomitant]

REACTIONS (4)
  - INTERSTITIAL LUNG DISEASE [None]
  - PERICARDIAL EFFUSION [None]
  - PLEURAL EFFUSION [None]
  - VIRAL PERICARDITIS [None]
